FAERS Safety Report 13720565 (Version 1)
Quarter: 2017Q3

REPORT INFORMATION
  Report Type: Spontaneous
  Country: US (occurrence: US)
  Receive Date: 20170705
  Receipt Date: 20170705
  Transmission Date: 20171127
  Serious: No
  Sender: FDA-Public Use
  Company Number: None

PATIENT
  Age: 17 Year
  Sex: Female

DRUGS (1)
  1. NUTROPIN AQ NUSPIN 20 [Suspect]
     Active Substance: SOMATROPIN

REACTIONS (1)
  - Turner^s syndrome [None]

NARRATIVE: CASE EVENT DATE: 20170703
